FAERS Safety Report 9200681 (Version 1)
Quarter: 2013Q1

REPORT INFORMATION
  Report Type: Spontaneous
  Country: IT (occurrence: IT)
  Receive Date: 20130331
  Receipt Date: 20130331
  Transmission Date: 20140127
  Serious: Yes (Hospitalization)
  Sender: FDA-Public Use
  Company Number: IT-AMGEN-ITASP2013021335

PATIENT
  Age: 69 Year
  Sex: Male

DRUGS (3)
  1. PANITUMUMAB [Suspect]
     Indication: RECTAL CANCER RECURRENT
     Dosage: 390 MG, CYCLICAL
     Route: 042
     Dates: start: 20121208, end: 20130228
  2. COUMADIN                           /00014802/ [Concomitant]
     Dosage: 5 MG, UNK
  3. PAROXETINA [Concomitant]
     Dosage: UNK

REACTIONS (1)
  - Hyponatraemic syndrome [Recovered/Resolved]
